FAERS Safety Report 7184057-3 (Version None)
Quarter: 2010Q4

REPORT INFORMATION
  Report Type: 
  Country: None (occurrence: None)
  Receive Date: 20101222
  Receipt Date: 20101209
  Transmission Date: 20110411
  Serious: Yes (Hospitalization, Other)
  Sender: FDA-Public Use
  Company Number: PHHY2010JP66088

PATIENT
  Sex: Female
  Weight: 57 kg

DRUGS (7)
  1. EQUA [Suspect]
     Indication: DIABETES MELLITUS
     Dosage: 100 MG (DAILY IN 2 DIVIDED DOSES)
     Route: 048
     Dates: start: 20100611, end: 20101002
  2. FLUVASTATIN [Suspect]
     Indication: HYPERLIPIDAEMIA
     Dosage: 30 MG, UNK
     Route: 048
     Dates: start: 20081111, end: 20101012
  3. FLUITRAN [Suspect]
     Dosage: 1 MG, UNK
     Dates: start: 20091203, end: 20101012
  4. NORVASC [Concomitant]
     Dosage: 5 MG, UNK
     Route: 048
     Dates: start: 20090806
  5. OLMETEC [Concomitant]
     Dosage: 20 MG, UNK
     Dates: start: 20091116
  6. GLACTIV [Concomitant]
     Indication: DIABETES MELLITUS
  7. DIPEPTIDYL-PEPTIDASE IV INHIBITOR [Concomitant]
     Indication: DIABETES MELLITUS

REACTIONS (10)
  - ABASIA [None]
  - ARTHRALGIA [None]
  - ASTHENIA [None]
  - BACK PAIN [None]
  - BLOOD CREATINE PHOSPHOKINASE INCREASED [None]
  - HYPOKALAEMIA [None]
  - MUSCULOSKELETAL STIFFNESS [None]
  - MYALGIA [None]
  - PAIN IN EXTREMITY [None]
  - RHABDOMYOLYSIS [None]
